FAERS Safety Report 17676281 (Version 2)
Quarter: 2020Q2

REPORT INFORMATION
  Report Type: Spontaneous
  Country: US (occurrence: US)
  Receive Date: 20200416
  Receipt Date: 20200423
  Transmission Date: 20200714
  Serious: No
  Sender: FDA-Public Use
  Company Number: US-CELGENEUS-USA-20200403473

PATIENT
  Sex: Male

DRUGS (2)
  1. FEDRATINIB [Suspect]
     Active Substance: FEDRATINIB
     Indication: OFF LABEL USE
  2. FEDRATINIB [Suspect]
     Active Substance: FEDRATINIB
     Indication: WHITE BLOOD CELL COUNT INCREASED
     Dosage: 100 MILLIGRAM
     Route: 048

REACTIONS (1)
  - Hepatic enzyme increased [Not Recovered/Not Resolved]
